FAERS Safety Report 9838907 (Version 2)
Quarter: 2014Q1

REPORT INFORMATION
  Report Type: Report from Study
  Country: US (occurrence: US)
  Receive Date: 20140123
  Receipt Date: 20140317
  Transmission Date: 20141002
  Serious: Yes (Other)
  Sender: FDA-Public Use
  Company Number: US-PURDUE-USA-2014-0110438

PATIENT
  Age: 63 Year
  Sex: Male

DRUGS (2)
  1. OXY CR TAB [Suspect]
     Indication: OSTEOARTHRITIS
     Dosage: UNK
     Route: 048
     Dates: start: 2010
  2. OXY CR TAB [Suspect]
     Dosage: 60 MG, TID
     Route: 048
     Dates: start: 20131213, end: 20140111

REACTIONS (2)
  - Suicidal ideation [Recovered/Resolved]
  - Pain [Unknown]
